FAERS Safety Report 20671704 (Version 1)
Quarter: 2022Q2

REPORT INFORMATION
  Report Type: Spontaneous
  Country: IN (occurrence: IN)
  Receive Date: 20220405
  Receipt Date: 20220405
  Transmission Date: 20220720
  Serious: Yes (Death, Other)
  Sender: FDA-Public Use
  Company Number: IN-SUN PHARMACEUTICAL INDUSTRIES LTD-2022R1-331436

PATIENT
  Age: 44 Year
  Sex: Male

DRUGS (3)
  1. INSULIN NOS [Suspect]
     Active Substance: INSULIN NOS
     Indication: Hyperkalaemia
     Dosage: UNK
     Route: 065
  2. ALBUTEROL [Suspect]
     Active Substance: ALBUTEROL
     Indication: Hyperkalaemia
     Dosage: UNK
     Route: 065
  3. DEXTROSE [Suspect]
     Active Substance: DEXTROSE
     Indication: Hyperkalaemia
     Dosage: UNK
     Route: 065

REACTIONS (1)
  - Cardiac arrest [Fatal]
